FAERS Safety Report 9499935 (Version 1)
Quarter: 2013Q3

REPORT INFORMATION
  Report Type: Spontaneous
  Country: GB (occurrence: None)
  Receive Date: 20130903
  Receipt Date: 20130903
  Transmission Date: 20140515
  Serious: Yes (Hospitalization)
  Sender: FDA-Public Use
  Company Number: GB-DEXPHARM-20130527

PATIENT
  Age: 85 Year
  Sex: Female

DRUGS (6)
  1. OMEPRAZOLE [Suspect]
     Indication: DUODENAL ULCER
     Route: 048
     Dates: end: 20130424
  2. INDAPAMIDE [Suspect]
     Dosage: 1.5 MG MILLGRAM(S) SEP. DOSAGES/INTERVAL: 1 IN 1 DAYS
     Route: 048
     Dates: end: 20130424
  3. CITALOPRAM [Suspect]
     Dosage: 20 MG MILLGRAM(S) SEP. DOSAGES/INTERVAL: 1 IN 1 DAYS
     Dates: end: 20130424
  4. CHLORPHENIRAMINE [Concomitant]
  5. PARACETAMOL [Concomitant]
  6. SIMVASTATIN [Concomitant]

REACTIONS (6)
  - Hyponatraemia [None]
  - Hypokalaemia [None]
  - Lethargy [None]
  - Mobility decreased [None]
  - Diarrhoea [None]
  - Drug interaction [None]
